FAERS Safety Report 5245495-9 (Version None)
Quarter: 2007Q1

REPORT INFORMATION
  Report Type: 
  Country: None (occurrence: None)
  Receive Date: 20070223
  Receipt Date: 20050321
  Transmission Date: 20070707
  Serious: Yes (Hospitalization)
  Sender: FDA-Public Use
  Company Number: AU-PFIZER INC-2004228110AU

PATIENT
  Sex: Female
  Weight: 56 kg

DRUGS (5)
  1. SU-011,248 [Suspect]
     Indication: GASTROINTESTINAL STROMAL TUMOUR
     Dosage: DAILY DOSE:50MG-FREQ:CYCLE 3
     Route: 048
  2. RAMIPRIL [Concomitant]
     Indication: HYPERTENSION
     Dosage: TEXT:2-5  MG
     Route: 048
  3. LASIX [Concomitant]
     Indication: OEDEMA PERIPHERAL
     Route: 048
  4. PANADOL [Concomitant]
     Indication: HEADACHE
     Route: 048
  5. TEMAZEPAM [Concomitant]
     Indication: SEDATION

REACTIONS (2)
  - CARDIAC FAILURE [None]
  - NEPHROTIC SYNDROME [None]
